FAERS Safety Report 22625035 (Version 1)
Quarter: 2023Q2

REPORT INFORMATION
  Report Type: Spontaneous
  Country: ID (occurrence: ID)
  Receive Date: 20230621
  Receipt Date: 20230621
  Transmission Date: 20230721
  Serious: Yes (Death, Life-Threatening, Other)
  Sender: FDA-Public Use
  Company Number: ID-PFIZER INC-PV202300107212

PATIENT
  Age: 71 Year
  Sex: Male

DRUGS (1)
  1. LORLATINIB [Suspect]
     Active Substance: LORLATINIB
     Indication: Non-small cell lung cancer
     Dosage: 100 MG, DAILY
     Dates: start: 20220809, end: 20220930

REACTIONS (13)
  - Death [Fatal]
  - Endotracheal intubation [Unknown]
  - Tracheostomy [Unknown]
  - Depressed level of consciousness [Unknown]
  - Bronchoscopy [Unknown]
  - Hyperbilirubinaemia [Unknown]
  - Thrombocytopenia [Unknown]
  - Neoplasm progression [Unknown]
  - Pyrexia [Unknown]
  - Cough [Unknown]
  - Increased need for sleep [Unknown]
  - Condition aggravated [Unknown]
  - Urine output decreased [Unknown]

NARRATIVE: CASE EVENT DATE: 20220813
